FAERS Safety Report 9296597 (Version 1)
Quarter: 2013Q2

REPORT INFORMATION
  Report Type: Spontaneous
  Country: DE (occurrence: DE)
  Receive Date: 20130517
  Receipt Date: 20130517
  Transmission Date: 20140414
  Serious: Yes (Congenital Anomaly, Other)
  Sender: FDA-Public Use
  Company Number: GXKR2013DE001851

PATIENT
  Sex: 0

DRUGS (4)
  1. VENLAFAXINE [Suspect]
     Indication: BIPOLAR DISORDER
     Dosage: MATERNAL DOSE: 75 [MG/D ]/ SINCE 2009
     Route: 064
     Dates: start: 20111102, end: 20120727
  2. QUILONORM RETARD [Suspect]
     Indication: BIPOLAR DISORDER
     Dosage: 1350 [MG/D ]/ SINCE 2009, (3X 450 BIS1125 ) BETWEEN 7.5. AND 30.5.(GW 27-30) INCREASED TO 1350 MG/D
     Route: 064
     Dates: start: 20111102, end: 20120727
  3. SEROQUEL [Suspect]
     Indication: BIPOLAR DISORDER
     Dosage: MATERNAL DOSE: 200 [MG/D ]/ SINCE 2009
     Route: 064
     Dates: start: 20111102, end: 20120727
  4. FOLIC ACID [Concomitant]
     Indication: PROPHYLAXIS OF NEURAL TUBE DEFECT
     Dosage: MATERNAL DOSE: 5 [MG/D ]/ + PRECONC.
     Route: 064
     Dates: start: 20111102, end: 20120727

REACTIONS (13)
  - Neonatal respiratory distress syndrome [Recovered/Resolved]
  - Congenital hydronephrosis [Unknown]
  - Persistent foetal circulation [Unknown]
  - Bundle branch block right [Unknown]
  - Large for dates baby [Unknown]
  - Drug withdrawal syndrome neonatal [Recovered/Resolved]
  - Polyhydramnios [None]
  - Caesarean section [None]
  - Breech presentation [None]
  - Respiratory failure [None]
  - Left ventricular hypertrophy [None]
  - Pulmonary hypertension [None]
  - Maternal drugs affecting foetus [None]
